FAERS Safety Report 8258015-1 (Version None)
Quarter: 2012Q2

REPORT INFORMATION
  Report Type: 
  Country: None (occurrence: None)
  Receive Date: 20120404
  Receipt Date: 20120323
  Transmission Date: 20120825
  Serious: No
  Sender: FDA-Public Use
  Company Number: US-JNJFOC-20120207768

PATIENT
  Sex: Male
  Weight: 91.17 kg

DRUGS (3)
  1. DURAGESIC-100 [Suspect]
     Indication: PAIN
     Route: 062
     Dates: start: 20060101, end: 20090101
  2. DURAGESIC-100 [Suspect]
     Route: 062
     Dates: start: 20090101
  3. METHADONE HCL [Concomitant]
     Indication: PAIN
     Dosage: UP TO 4 TIMES A DAY
     Route: 048

REACTIONS (3)
  - WRONG TECHNIQUE IN DRUG USAGE PROCESS [None]
  - DRUG LEVEL DECREASED [None]
  - PRODUCT QUALITY ISSUE [None]
